FAERS Safety Report 8389552 (Version 2)
Quarter: 2015Q1

REPORT INFORMATION
  Report Type: Report from Study
  Country: US (occurrence: US)
  Receive Date: 20120203
  Receipt Date: 20150225
  Transmission Date: 20150721
  Serious: Yes (Death)
  Sender: FDA-Public Use
  Company Number: US-ROCHE-1036196

PATIENT
  Age: 50 Year
  Sex: Male

DRUGS (25)
  1. AVASTIN [Suspect]
     Active Substance: BEVACIZUMAB
     Route: 042
  2. CARBOPLATIN. [Concomitant]
     Active Substance: CARBOPLATIN
     Route: 042
  3. DILANTIN [Concomitant]
     Active Substance: PHENYTOIN
     Dosage: 3 TABLET
     Route: 048
  4. AVASTIN [Suspect]
     Active Substance: BEVACIZUMAB
     Indication: BRAIN NEOPLASM MALIGNANT
     Route: 042
     Dates: start: 20060328
  5. DEXAMETHASONE. [Concomitant]
     Active Substance: DEXAMETHASONE
     Dosage: 2 TABLET
     Route: 048
  6. LORAZEPAM. [Concomitant]
     Active Substance: LORAZEPAM
     Dosage: 1 OR 2 TABLET PRN
     Route: 048
  7. ACETAMINOPHEN. [Concomitant]
     Active Substance: ACETAMINOPHEN
     Route: 048
  8. IRINOTECAN [Concomitant]
     Active Substance: IRINOTECAN
     Route: 042
  9. CLONAZEPAN [Concomitant]
     Active Substance: CLONAZEPAM
     Dosage: 2 TABLET
     Route: 048
  10. LOMUSTINE. [Concomitant]
     Active Substance: LOMUSTINE
     Route: 048
  11. ATROPIN [Concomitant]
     Route: 042
  12. CARBOPLATIN. [Concomitant]
     Active Substance: CARBOPLATIN
     Route: 042
  13. RANITIDINE [Concomitant]
     Active Substance: RANITIDINE\RANITIDINE HYDROCHLORIDE
     Dosage: 2 TABLET
     Route: 048
  14. LOMUSTINE. [Concomitant]
     Active Substance: LOMUSTINE
     Route: 048
  15. ETOPOSIDE. [Concomitant]
     Active Substance: ETOPOSIDE
  16. LORAZEPAM. [Concomitant]
     Active Substance: LORAZEPAM
     Dosage: PRN
     Route: 048
  17. KYTRIL [Concomitant]
     Active Substance: GRANISETRON HYDROCHLORIDE
     Route: 048
  18. KYTRIL [Concomitant]
     Active Substance: GRANISETRON HYDROCHLORIDE
     Route: 048
  19. GLYCOLAX [Concomitant]
     Active Substance: POLYETHYLENE GLYCOL 3350
     Dosage: PRN
     Route: 065
  20. LOMUSTINE. [Concomitant]
     Active Substance: LOMUSTINE
     Route: 048
  21. CPT-11 [Concomitant]
     Active Substance: IRINOTECAN
     Route: 042
     Dates: start: 200606, end: 20060823
  22. KEPPRA [Concomitant]
     Active Substance: LEVETIRACETAM
     Dosage: 6 TABLET
     Route: 048
  23. LOMUSTINE. [Concomitant]
     Active Substance: LOMUSTINE
     Route: 048
  24. ATIVAN [Concomitant]
     Active Substance: LORAZEPAM
  25. LIPITOR [Concomitant]
     Active Substance: ATORVASTATIN CALCIUM
     Route: 048

REACTIONS (7)
  - Fatigue [Unknown]
  - Off label use [Unknown]
  - Neoplasm progression [Unknown]
  - Anxiety [Unknown]
  - Death [Fatal]
  - Neoplasm [Unknown]
  - Skin disorder [Unknown]

NARRATIVE: CASE EVENT DATE: 20090906
